FAERS Safety Report 7626063-8 (Version None)
Quarter: 2011Q3

REPORT INFORMATION
  Report Type: 
  Country: None (occurrence: None)
  Receive Date: 20110713
  Receipt Date: 20110629
  Transmission Date: 20111222
  Serious: Yes (Hospitalization)
  Sender: FDA-Public Use
  Company Number: 2011P1007483

PATIENT
  Age: 41 Year
  Sex: Female
  Weight: 69.4003 kg

DRUGS (6)
  1. CALCIUM ACETATE [Concomitant]
  2. VITAMIN D [Concomitant]
  3. LAMISIL [Concomitant]
  4. SOLODYN [Suspect]
     Indication: ACNE
     Dosage: 115 MG; QD; PO
     Route: 048
     Dates: start: 20100501, end: 20110620
  5. SOLODYN [Suspect]
     Indication: ACNE
     Dosage: 65 MG; QD; PO
     Route: 048
     Dates: start: 20100301, end: 20100501
  6. ZYZAL [Concomitant]

REACTIONS (11)
  - DYSPEPSIA [None]
  - GASTROOESOPHAGEAL REFLUX DISEASE [None]
  - WEIGHT DECREASED [None]
  - IMPAIRED WORK ABILITY [None]
  - ASTHENIA [None]
  - DYSGEUSIA [None]
  - ACNE [None]
  - PRURITUS GENERALISED [None]
  - HYPOPHAGIA [None]
  - JAUNDICE [None]
  - ACUTE HEPATIC FAILURE [None]
